FAERS Safety Report 11145829 (Version 1)
Quarter: 2015Q2

REPORT INFORMATION
  Report Type: Spontaneous
  Country: US (occurrence: US)
  Receive Date: 20150528
  Receipt Date: 20150528
  Transmission Date: 20150821
  Serious: No
  Sender: FDA-Public Use
  Company Number: US-PFIZER INC-2015179778

PATIENT
  Age: 52 Year
  Sex: Female
  Weight: 76 kg

DRUGS (1)
  1. ADRIAMYCIN [Suspect]
     Active Substance: DOXORUBICIN HYDROCHLORIDE
     Indication: NEOPLASM MALIGNANT
     Dosage: UNK

REACTIONS (2)
  - Neoplasm malignant [Unknown]
  - Disease progression [Unknown]
